FAERS Safety Report 9098109 (Version 2)
Quarter: 2013Q1

REPORT INFORMATION
  Report Type: Spontaneous
  Country: US (occurrence: US)
  Receive Date: 20130213
  Receipt Date: 20130307
  Transmission Date: 20140127
  Serious: Yes (Life-Threatening, Hospitalization)
  Sender: FDA-Public Use
  Company Number: PHEH2013US003478

PATIENT
  Age: 63 Year
  Sex: Female
  Weight: 87 kg

DRUGS (4)
  1. AFINITOR [Suspect]
     Indication: BREAST CANCER METASTATIC
     Dosage: 10 MG/DAY
     Route: 048
     Dates: start: 20130104, end: 20130207
  2. EXEMESTANE [Concomitant]
     Indication: BREAST CANCER METASTATIC
     Dosage: 25 MG/DAY
     Route: 048
     Dates: start: 201212, end: 20130225
  3. LISINOPRIL [Concomitant]
     Indication: HYPERTENSION
     Dosage: 10 MG/DAY
     Route: 048
  4. LISINOPRIL [Concomitant]
     Indication: BREAST CANCER METASTATIC

REACTIONS (11)
  - Myocardial infarction [Recovered/Resolved]
  - Angina pectoris [Unknown]
  - Chest discomfort [Unknown]
  - Dyspnoea [Unknown]
  - Nausea [Unknown]
  - Vomiting [Unknown]
  - Hyperhidrosis [Unknown]
  - Fatigue [Unknown]
  - Restlessness [Unknown]
  - Cold sweat [Unknown]
  - Pallor [Unknown]
